FAERS Safety Report 9255765 (Version 1)
Quarter: 2013Q2

REPORT INFORMATION
  Report Type: Spontaneous
  Country: NZ (occurrence: NZ)
  Receive Date: 20130425
  Receipt Date: 20130425
  Transmission Date: 20140414
  Serious: Yes (Death)
  Sender: FDA-Public Use
  Company Number: NZ-BAXTER-2013BAX014541

PATIENT
  Age: 54 Year
  Sex: Male

DRUGS (11)
  1. DIANEAL 1MMOL CALCIUM IN 1.5% GLUCOSE PERITONEAL DIALYSIS SOLUTION STA [Suspect]
     Indication: PERITONEAL DIALYSIS
     Route: 033
  2. DIANEAL 1MMOL CALCIUM IN 2.5% GLUCOSE PERITONEAL DIALYSIS SOLUTION SIN [Suspect]
     Indication: PERITONEAL DIALYSIS
     Route: 033
  3. DIANEAL PD-4 PERITONEAL DIALYSIS SOLUTION WITH 1.5% W_V GLUCOSE LOW CA [Suspect]
     Indication: PERITONEAL DIALYSIS
     Route: 033
  4. DIANEAL PD-4 PERITONEAL DIALYSIS SOLUTION WITH 2.5% W_V GLUCOSE LOW CA [Suspect]
     Indication: PERITONEAL DIALYSIS
     Route: 033
  5. DIANEAL LOW CALCIUM WITH 1.5 PERCENT W/V GLUCOSE PERITONEAL DIALYSIS S [Suspect]
     Indication: PERITONEAL DIALYSIS
     Route: 033
  6. DIANEAL LOW CALCIUM WITH 2.5 PERCENT W/V GLUCOSE PERITONEAL DIALYSIS S [Suspect]
     Indication: PERITONEAL DIALYSIS
     Route: 033
  7. DIANEAL LOW CALCIUM WITH 2.5 PERCENT W/V GLUCOSE PERITONEAL DIALYSIS S [Suspect]
     Dates: end: 20130413
  8. DIANEAL LOW CALCIUM WITH 2.5 PERCENT W/V GLUCOSE PERITONEAL DIALYSIS S [Suspect]
     Dates: end: 20130413
  9. DIANEAL LOW CALCIUM WITH 2.5 PERCENT W/V GLUCOSE PERITONEAL DIALYSIS S [Suspect]
     Dates: end: 20130413
  10. DIANEAL LOW CALCIUM WITH 2.5 PERCENT W/V GLUCOSE PERITONEAL DIALYSIS S [Suspect]
     Dates: end: 20130413
  11. DIANEAL LOW CALCIUM WITH 2.5 PERCENT W/V GLUCOSE PERITONEAL DIALYSIS S [Suspect]
     Dates: end: 20130413

REACTIONS (1)
  - Death [Fatal]
